FAERS Safety Report 6038278-3 (Version None)
Quarter: 2009Q1

REPORT INFORMATION
  Report Type: 
  Country: None (occurrence: None)
  Receive Date: 20090115
  Receipt Date: 20090109
  Transmission Date: 20090719
  Serious: Yes (Death, Hospitalization, Other)
  Sender: FDA-Public Use
  Company Number: GB-CELGENEUS-167-21880-08111434

PATIENT
  Sex: Male
  Weight: 68 kg

DRUGS (2)
  1. REVLIMID [Suspect]
     Indication: MANTLE CELL LYMPHOMA
     Route: 048
     Dates: start: 20081119
  2. REVLIMID [Suspect]
     Route: 048
     Dates: start: 20081216, end: 20081218

REACTIONS (8)
  - ARTHRALGIA [None]
  - CEREBROVASCULAR ACCIDENT [None]
  - DEHYDRATION [None]
  - EATING DISORDER SYMPTOM [None]
  - MANTLE CELL LYMPHOMA [None]
  - PNEUMONIA [None]
  - SPLENOMEGALY [None]
  - VOMITING [None]
